FAERS Safety Report 8314279-7 (Version None)
Quarter: 2012Q2

REPORT INFORMATION
  Report Type: 
  Country: None (occurrence: None)
  Receive Date: 20120424
  Receipt Date: 20120418
  Transmission Date: 20120825
  Serious: Yes (Death, Other)
  Sender: FDA-Public Use
  Company Number: CLOF-1000095

PATIENT
  Age: 70 Year
  Sex: Male

DRUGS (1)
  1. EVOLTRA (CLOFARABINE) SOLUTION FOR INFUSION [Suspect]
     Indication: ACUTE MYELOID LEUKAEMIA
     Dosage: 1 DF, QDX5,, UNKNOWN
     Dates: start: 20071220, end: 20080204

REACTIONS (10)
  - CLOSTRIDIAL INFECTION [None]
  - WHITE BLOOD CELL COUNT DECREASED [None]
  - STAPHYLOCOCCAL INFECTION [None]
  - BACTERIAL INFECTION [None]
  - ACUTE MYELOID LEUKAEMIA [None]
  - NEUTROPENIA [None]
  - DEVICE RELATED INFECTION [None]
  - NEOPLASM PROGRESSION [None]
  - THROMBOCYTOPENIA [None]
  - HAEMOGLOBIN DECREASED [None]
